FAERS Safety Report 9972034 (Version 1)
Quarter: 2014Q1

REPORT INFORMATION
  Report Type: Report from Study
  Country: US (occurrence: US)
  Receive Date: 20140306
  Receipt Date: 20140306
  Transmission Date: 20141002
  Serious: No
  Sender: FDA-Public Use
  Company Number: US-ABBVIE-13P-163-1148209-00

PATIENT
  Age: 44 Year
  Sex: Female

DRUGS (11)
  1. HUMIRA [Suspect]
     Indication: CROHN^S DISEASE
     Dates: start: 20130318
  2. PERCOCET [Concomitant]
     Indication: PAIN
     Dosage: 5/325MG
  3. IBUPROFEN [Concomitant]
     Indication: PAIN
     Dosage: 4 AS NEEDED
  4. CYMBALTA [Concomitant]
     Indication: DEPRESSION
     Dosage: 60MG DAILY
  5. NEURONTIN [Concomitant]
     Indication: DEPRESSION
     Dosage: 300MG DAILY
  6. BABY ASPIRIN [Concomitant]
     Indication: PROPHYLAXIS
  7. DEXILANT [Concomitant]
     Indication: GASTROOESOPHAGEAL REFLUX DISEASE
     Dosage: DAILY
  8. KLONOPIN [Concomitant]
     Indication: INSOMNIA
     Dosage: AT  NIGHT
  9. VITAMIN B12 [Concomitant]
     Indication: PRODUCT USED FOR UNKNOWN INDICATION
  10. VITAMIN B COMPLEX [Concomitant]
     Indication: ABDOMINAL PAIN UPPER
  11. VITAMIN B6 [Concomitant]
     Indication: ABDOMINAL PAIN UPPER

REACTIONS (6)
  - Product colour issue [Unknown]
  - Product colour issue [Unknown]
  - Product colour issue [Unknown]
  - Incorrect dose administered [Unknown]
  - Hypovitaminosis [Unknown]
  - Injection site pain [Unknown]
